FAERS Safety Report 7239954-7 (Version None)
Quarter: 2011Q1

REPORT INFORMATION
  Report Type: 
  Country: None (occurrence: None)
  Receive Date: 20110124
  Receipt Date: 20110114
  Transmission Date: 20110831
  Serious: Yes (Hospitalization)
  Sender: FDA-Public Use
  Company Number: US-BIOGENIDEC-2009BI005401

PATIENT
  Age: 48 Year
  Sex: Female
  Weight: 97 kg

DRUGS (3)
  1. AVONEX [Suspect]
     Indication: MULTIPLE SCLEROSIS
     Route: 030
     Dates: start: 19980101, end: 20070101
  2. AVONEX [Suspect]
     Route: 030
     Dates: start: 20070101
  3. PNEUMONIA SHOT [Concomitant]
     Indication: INFECTION PROPHYLAXIS
     Dates: start: 20090711, end: 20090711

REACTIONS (14)
  - PARAESTHESIA [None]
  - SCAR [None]
  - THYROID MASS [None]
  - SJOGREN'S SYNDROME [None]
  - STAPHYLOCOCCAL INFECTION [None]
  - CARPAL TUNNEL SYNDROME [None]
  - NAUSEA [None]
  - AGRAPHIA [None]
  - INFLUENZA LIKE ILLNESS [None]
  - MULTIPLE SCLEROSIS RELAPSE [None]
  - FEELING HOT [None]
  - BAND SENSATION [None]
  - MUSCLE TIGHTNESS [None]
  - INJECTION SITE INFECTION [None]
